FAERS Safety Report 7513025-4 (Version None)
Quarter: 2011Q2

REPORT INFORMATION
  Report Type: 
  Country: None (occurrence: None)
  Receive Date: 20110531
  Receipt Date: 20110525
  Transmission Date: 20111010
  Serious: Yes (Other)
  Sender: FDA-Public Use
  Company Number: US-ROXANE LABORATORIES, INC.-2011-RO-00720RO

PATIENT
  Age: 7 Year
  Sex: Female

DRUGS (5)
  1. AZATHIOPRINE [Suspect]
     Dosage: 75 MG
  2. PREDNISONE [Suspect]
     Dosage: 60 MG
  3. PREDNISONE [Suspect]
     Indication: AUTOIMMUNE HEPATITIS
     Dosage: 40 MG
  4. AZATHIOPRINE [Suspect]
     Indication: AUTOIMMUNE HEPATITIS
     Dosage: 25 MG
  5. METHOTREXATE [Suspect]
     Indication: AUTOIMMUNE HEPATITIS
     Route: 058

REACTIONS (5)
  - BONE DENSITY DECREASED [None]
  - CUSHINGOID [None]
  - ADRENAL INSUFFICIENCY [None]
  - NAUSEA [None]
  - GROWTH RETARDATION [None]
